FAERS Safety Report 9988198 (Version 5)
Quarter: 2014Q2

REPORT INFORMATION
  Report Type: Spontaneous
  Country: JP (occurrence: JP)
  Receive Date: 20140309
  Receipt Date: 20140625
  Transmission Date: 20141212
  Serious: Yes (Hospitalization)
  Sender: FDA-Public Use
  Company Number: PHHY2014JP025841

PATIENT
  Age: 62 Year
  Sex: Female
  Weight: 65 kg

DRUGS (4)
  1. TASIGNA [Suspect]
     Indication: CHRONIC MYELOID LEUKAEMIA
     Dosage: 200 MG, BID
     Route: 048
     Dates: start: 20130611, end: 20130624
  2. TASIGNA [Suspect]
     Dosage: 200 MG, QD
     Route: 048
     Dates: start: 20130625, end: 20130805
  3. TASIGNA [Suspect]
     Dosage: 150 MG, BID
     Route: 048
     Dates: start: 20130806, end: 20131007
  4. TASIGNA [Suspect]
     Dosage: 400 MG, DAILY
     Route: 048
     Dates: start: 20131008, end: 20140203

REACTIONS (10)
  - Progressive multifocal leukoencephalopathy [Recovered/Resolved]
  - Quadriplegia [Recovered/Resolved]
  - Gait disturbance [Not Recovered/Not Resolved]
  - Eye movement disorder [Recovered/Resolved]
  - Dyslalia [Recovered/Resolved]
  - Hyperreflexia [Recovered/Resolved]
  - Asthenia [Unknown]
  - Infection [Unknown]
  - White blood cell count increased [Recovered/Resolved]
  - Blood creatine phosphokinase increased [Recovering/Resolving]
